FAERS Safety Report 4609972-3 (Version None)
Quarter: 2005Q1

REPORT INFORMATION
  Report Type: 
  Country: None (occurrence: None)
  Receive Date: 20050314
  Receipt Date: 20040513
  Transmission Date: 20050727
  Serious: No
  Sender: FDA-Public Use
  Company Number: 8013

PATIENT
  Age: 76 Year
  Sex: Male

DRUGS (1)
  1. AMIODARONE [Suspect]
     Indication: CARDIAC FAILURE
     Dosage: 200 MG FREQ
     Route: 048
     Dates: start: 20011031, end: 20040503

REACTIONS (1)
  - HYPERTHYROIDISM [None]
